FAERS Safety Report 22599929 (Version 2)
Quarter: 2023Q2

REPORT INFORMATION
  Report Type: Report from Study
  Country: US (occurrence: US)
  Receive Date: 20230614
  Receipt Date: 20230623
  Transmission Date: 20230721
  Serious: Yes (Other)
  Sender: FDA-Public Use
  Company Number: US-002147023-NVSC2023US131128

PATIENT
  Sex: Female
  Weight: 56.7 kg

DRUGS (8)
  1. COSENTYX [Suspect]
     Active Substance: SECUKINUMAB
     Indication: Psoriasis
     Dosage: UNK
     Route: 065
     Dates: end: 20210730
  2. IBUPROFEN [Suspect]
     Active Substance: IBUPROFEN
     Indication: Psoriasis
     Dosage: UNK
     Route: 065
  3. SULFACETAMIDE SODIUM [Suspect]
     Active Substance: SULFACETAMIDE SODIUM
     Indication: Psoriasis
     Dosage: UNK
     Route: 065
  4. KETOCONAZOLE [Suspect]
     Active Substance: KETOCONAZOLE
     Indication: Psoriasis
     Dosage: UNK
     Route: 065
  5. LAMISIL [Suspect]
     Active Substance: TERBINAFINE HYDROCHLORIDE
     Indication: Psoriasis
     Dosage: UNK
     Route: 065
  6. MAGNESIUM [Suspect]
     Active Substance: MAGNESIUM
     Indication: Psoriasis
     Dosage: UNK
     Route: 065
  7. BIFIDOBACTERIUM ANIMALIS LACTIS [Suspect]
     Active Substance: BIFIDOBACTERIUM ANIMALIS LACTIS
     Indication: Psoriasis
     Dosage: UNK
     Route: 065
  8. VITAMIN C [Suspect]
     Active Substance: ASCORBIC ACID
     Indication: Psoriasis
     Dosage: UNK
     Route: 065

REACTIONS (9)
  - Psoriatic arthropathy [Unknown]
  - Arthralgia [Not Recovered/Not Resolved]
  - Psoriasis [Unknown]
  - Actinic keratosis [Unknown]
  - Skin hyperpigmentation [Unknown]
  - Skin hypopigmentation [Unknown]
  - Telangiectasia [Unknown]
  - Drug ineffective [Unknown]
  - Product use in unapproved indication [Unknown]
